FAERS Safety Report 6017218-7 (Version None)
Quarter: 2008Q4

REPORT INFORMATION
  Report Type: 
  Country: None (occurrence: None)
  Receive Date: 20081223
  Receipt Date: 20081219
  Transmission Date: 20090506
  Serious: Yes (Other)
  Sender: FDA-Public Use
  Company Number: FR-ASTRAZENECA-2008CG01884

PATIENT
  Age: 15624 Day
  Sex: Male

DRUGS (2)
  1. CRESTOR [Suspect]
     Route: 048
  2. FUCIDINE CAP [Interacting]
     Indication: LOCALISED INFECTION
     Route: 048
     Dates: start: 20081108, end: 20081109

REACTIONS (4)
  - BLOOD CREATINE PHOSPHOKINASE INCREASED [None]
  - BLOOD PRESSURE SYSTOLIC INCREASED [None]
  - DRUG INTERACTION [None]
  - MYALGIA [None]
